FAERS Safety Report 22134170 (Version 9)
Quarter: 2023Q2

REPORT INFORMATION
  Report Type: Report from Study
  Country: US (occurrence: None)
  Receive Date: 20230324
  Receipt Date: 20230620
  Transmission Date: 20230721
  Serious: Yes (Hospitalization)
  Sender: FDA-Public Use
  Company Number: US-ROCHE-3314577

PATIENT
  Age: 74 Year
  Sex: Female
  Weight: 61.1 kg

DRUGS (19)
  1. ATEZOLIZUMAB [Suspect]
     Active Substance: ATEZOLIZUMAB
     Indication: Pancreatic carcinoma metastatic
     Dosage: ON 06/MAR/2023 AT 11:18 AM, SHE RECEIVED MOST RECENT DOSE OF ATEZOLIZUMAB (840 MG)PRIOR TO AE/SAE.
     Route: 041
     Dates: start: 20230306
  2. RLY-1971 [Suspect]
     Active Substance: RLY-1971
     Indication: Pancreatic carcinoma metastatic
     Dosage: ON 13/MAR/2023 AT 10:25 AM, SHE RECEIVED MOST RECENT DOSE OF GDC-1971 (60 MG)PRIOR TO AE/SAE.
     Route: 048
     Dates: start: 20230306
  3. ATROPINE\DIPHENOXYLATE [Concomitant]
     Active Substance: ATROPINE\DIPHENOXYLATE
     Indication: Diarrhoea
     Dosage: 1 TABLET
     Route: 048
     Dates: start: 20230125, end: 20230406
  4. OXYCODONE [Concomitant]
     Active Substance: OXYCODONE
     Indication: Pain
     Route: 048
     Dates: start: 20220607, end: 20230406
  5. TRAMADOL [Concomitant]
     Active Substance: TRAMADOL
     Indication: Pain
     Route: 048
     Dates: start: 20201215, end: 20230406
  6. PRAVASTATIN [Concomitant]
     Active Substance: PRAVASTATIN
     Indication: Blood cholesterol
     Route: 048
     Dates: start: 20200406, end: 20230406
  7. NORTRIPTYLINE [Concomitant]
     Active Substance: NORTRIPTYLINE
     Route: 048
     Dates: start: 20210106, end: 20230406
  8. RIVAROXABAN [Concomitant]
     Active Substance: RIVAROXABAN
     Indication: Deep vein thrombosis
     Route: 048
     Dates: start: 20220919, end: 20230406
  9. GABAPENTIN [Concomitant]
     Active Substance: GABAPENTIN
     Indication: Dizziness
     Route: 001
     Dates: start: 20200406, end: 20230406
  10. METFORMIN [Concomitant]
     Active Substance: METFORMIN HYDROCHLORIDE
     Indication: Diabetes mellitus
     Route: 048
     Dates: start: 20200406, end: 20230406
  11. LEVOTHYROXINE [Concomitant]
     Active Substance: LEVOTHYROXINE
     Route: 048
     Dates: start: 20200826, end: 20230406
  12. DULOXETINE [Concomitant]
     Active Substance: DULOXETINE
     Indication: Neuropathy peripheral
     Route: 048
     Dates: start: 20210114, end: 20230406
  13. CEFTRIAXONE [Concomitant]
     Active Substance: CEFTRIAXONE
     Indication: Neutropenia
     Route: 042
     Dates: start: 20230318, end: 20230318
  14. NEUPOGEN [Concomitant]
     Active Substance: FILGRASTIM
     Indication: White blood cell count
     Dosage: 300 OTHER
     Route: 042
     Dates: start: 20230320, end: 20230320
  15. VOLTAREN [Concomitant]
     Active Substance: DICLOFENAC SODIUM
     Indication: Arthritis
     Route: 061
     Dates: start: 20220909
  16. VITAMIN D3 [Concomitant]
     Active Substance: CHOLECALCIFEROL
     Dosage: 25 OTHER
     Route: 048
     Dates: start: 20220909
  17. PROCHLORPERAZINE [Concomitant]
     Active Substance: PROCHLORPERAZINE
     Indication: Nausea
     Route: 048
     Dates: start: 20220620
  18. MELOXICAM [Concomitant]
     Active Substance: MELOXICAM
     Indication: Arthritis
     Route: 048
     Dates: start: 20201023
  19. MECLIZINE [Concomitant]
     Active Substance: MECLIZINE HYDROCHLORIDE
     Indication: Dizziness
     Route: 048
     Dates: start: 20220607

REACTIONS (2)
  - Neutrophil count decreased [Recovered/Resolved]
  - Platelet count decreased [Not Recovered/Not Resolved]

NARRATIVE: CASE EVENT DATE: 20230318
